FAERS Safety Report 16712590 (Version 3)
Quarter: 2019Q3

REPORT INFORMATION
  Report Type: Spontaneous
  Country: IE (occurrence: IE)
  Receive Date: 20190816
  Receipt Date: 20190819
  Transmission Date: 20191004
  Serious: Yes (Other)
  Sender: FDA-Public Use
  Company Number: PHHY2019IE185894

PATIENT
  Age: 2 Year
  Sex: Female

DRUGS (5)
  1. PREDNISOLONE. [Suspect]
     Active Substance: PREDNISOLONE
     Indication: FOOD ALLERGY
     Dosage: UNK
     Route: 048
  2. BETAMETHASONE. [Suspect]
     Active Substance: BETAMETHASONE
     Indication: ECZEMA
     Dosage: UNK
     Route: 061
  3. HYDROCORTISONE. [Suspect]
     Active Substance: HYDROCORTISONE
     Indication: ECZEMA
     Dosage: UNK
     Route: 061
  4. DEXAMETHASONE. [Suspect]
     Active Substance: DEXAMETHASONE
     Indication: ECZEMA
     Dosage: UNK
     Route: 065
  5. CLOBETASONE [Suspect]
     Active Substance: CLOBETASONE
     Indication: ECZEMA
     Dosage: UNK
     Route: 061

REACTIONS (6)
  - Pigmentation disorder [Recovered/Resolved]
  - Skin striae [Recovered/Resolved]
  - Hypertrichosis [Recovered/Resolved]
  - Adrenal insufficiency [Recovered/Resolved]
  - Adrenal suppression [Recovered/Resolved]
  - Weight increased [Recovered/Resolved]
